FAERS Safety Report 6634294 (Version 4)
Quarter: 2013Q2

REPORT INFORMATION
  Report Type: Spontaneous
  Country: US (occurrence: US)
  Receive Date: 20080507
  Receipt Date: 20120515
  Transmission Date: 20140414
  Serious: Yes (Other)
  Sender: FDA-Public Use
  Company Number: PHEH2008US04179

PATIENT
  Age: 60 Year
  Sex: Male

DRUGS (15)
  1. ZOMETA (ZOLEDRONATE) SOLUTION FOR INJECTION [Suspect]
     Indication: METASTASES TO BONE
     Dosage: 4 MG, Q3-4WEEKS
     Route: 042
     Dates: start: 20070330, end: 20080312
  2. AVASTIN [Concomitant]
     Indication: SMALL CELL LUNG CANCER METASTATIC
     Dosage: 15 MG/KG, QW3
     Dates: start: 200702, end: 200706
  3. CARBOPLATIN [Concomitant]
     Indication: SMALL CELL LUNG CANCER METASTATIC
     Dosage: AUC 6, Q3WEEKS
     Dates: start: 200702, end: 200706
  4. PACLITAXEL [Concomitant]
     Indication: SMALL CELL LUNG CANCER METASTATIC
     Dosage: 200 MG/M2, Q3WEEKS
     Dates: start: 200702, end: 200706
  5. EMEND [Concomitant]
  6. DEXAMETHASONE [Concomitant]
     Indication: PROPHYLAXIS OF NAUSEA AND VOMITING
     Dosage: 4 MG, BID DAYS 2,3,4
     Route: 048
     Dates: start: 20070220, end: 200811
  7. BENADRYL [Concomitant]
  8. ZOFRAN [Concomitant]
  9. COUMADIN [Concomitant]
  10. CALTRATE WITH VITAMIN D [Concomitant]
  11. COMPAZINE [Concomitant]
  12. PEPCID AC [Concomitant]
  13. M.V.I. ADULT [Concomitant]
  14. CISPLATIN [Concomitant]
     Indication: SMALL CELL LUNG CANCER METASTATIC
     Dosage: 30 MG/M2, QW
     Dates: start: 20071011, end: 20071025
  15. RADIATION THERAPY [Concomitant]
     Indication: SMALL CELL LUNG CANCER METASTATIC
     Dosage: UNK
     Dates: start: 200711, end: 200712

REACTIONS (3)
  - OSTEONECROSIS [Not Recovered/Not Resolved]
  - PAIN IN JAW [Not Recovered/Not Resolved]
  - BONE DISORDER [Unknown]
